FAERS Safety Report 7757357-3 (Version None)
Quarter: 2011Q3

REPORT INFORMATION
  Report Type: 
  Country: None (occurrence: None)
  Receive Date: 20110916
  Receipt Date: 20110912
  Transmission Date: 20111222
  Serious: Yes (Congenital Anomaly)
  Sender: FDA-Public Use
  Company Number: GB-GILEAD-2011-0043782

PATIENT
  Sex: Female

DRUGS (2)
  1. EFAVIRENZ [Concomitant]
     Indication: HIV INFECTION
     Route: 064
     Dates: start: 20081002
  2. TRUVADA [Suspect]
     Indication: HIV INFECTION
     Route: 064
     Dates: start: 20081002

REACTIONS (1)
  - POLYDACTYLY [None]
